FAERS Safety Report 7415064-0 (Version None)
Quarter: 2011Q2

REPORT INFORMATION
  Report Type: 
  Country: None (occurrence: None)
  Receive Date: 20110414
  Receipt Date: 20110404
  Transmission Date: 20111010
  Serious: Yes (Other)
  Sender: FDA-Public Use
  Company Number: US-US-EMD SERONO, INC.-7037898

PATIENT
  Sex: Female

DRUGS (1)
  1. REBIF [Suspect]
     Indication: PRODUCT USED FOR UNKNOWN INDICATION
     Route: 058
     Dates: start: 20101120

REACTIONS (5)
  - WHITE BLOOD CELL COUNT DECREASED [None]
  - LABORATORY TEST ABNORMAL [None]
  - BLOOD BILIRUBIN INCREASED [None]
  - HEART RATE ABNORMAL [None]
  - FATIGUE [None]
